FAERS Safety Report 5364876-6 (Version None)
Quarter: 2007Q2

REPORT INFORMATION
  Report Type: 
  Country: None (occurrence: None)
  Receive Date: 20070606
  Receipt Date: 20060710
  Transmission Date: 20071010
  Serious: Yes (Hospitalization)
  Sender: FDA-Public Use
  Company Number: 2006086144

PATIENT
  Age: 58 Year
  Sex: Female
  Weight: 81.1939 kg

DRUGS (5)
  1. ELLENCE [Suspect]
     Indication: DRUG USE FOR UNKNOWN INDICATION
     Dosage: 90 MG (90 MG, INTERVAL: EVERY 3 WEEKS), INTRAVENOUS
     Route: 042
     Dates: start: 20060210
  2. ALL OTHER THERAPEUTIC PRODUCTS [Concomitant]
  3. SYNTHROID [Concomitant]
  4. LORAZEPAM [Concomitant]
  5. COMPAZINE [Concomitant]

REACTIONS (1)
  - FEBRILE NEUTROPENIA [None]
